FAERS Safety Report 10058268 (Version 1)
Quarter: 2014Q2

REPORT INFORMATION
  Report Type: Spontaneous
  Country: US (occurrence: US)
  Receive Date: 20140404
  Receipt Date: 20140404
  Transmission Date: 20141212
  Serious: Yes (Hospitalization)
  Sender: FDA-Public Use
  Company Number: US-JNJFOC-20140316192

PATIENT
  Age: 81 Year
  Sex: Female

DRUGS (1)
  1. INVEGA SUSTENNA [Suspect]
     Indication: PRODUCT USED FOR UNKNOWN INDICATION
     Route: 030
     Dates: start: 20140321

REACTIONS (6)
  - Lethargy [Unknown]
  - Dizziness [Unknown]
  - Sluggishness [Unknown]
  - Dysarthria [Unknown]
  - Hypertension [Unknown]
  - Treatment noncompliance [Unknown]
